FAERS Safety Report 12714464 (Version 1)
Quarter: 2016Q3

REPORT INFORMATION
  Report Type: Spontaneous
  Country: US (occurrence: US)
  Receive Date: 20160905
  Receipt Date: 20160905
  Transmission Date: 20161109
  Serious: No
  Sender: FDA-Public Use
  Company Number: US-JAZZ-2016-US-008990

PATIENT
  Sex: Male

DRUGS (21)
  1. MORPHINE SULF ER [Concomitant]
  2. PRILOSEC [Concomitant]
     Active Substance: OMEPRAZOLE MAGNESIUM
  3. ALPRAZOLAM. [Concomitant]
     Active Substance: ALPRAZOLAM
  4. CARISOPRODOL. [Concomitant]
     Active Substance: CARISOPRODOL
  5. ROBAXIN [Concomitant]
     Active Substance: METHOCARBAMOL
  6. XYREM [Suspect]
     Active Substance: SODIUM OXYBATE
     Indication: NARCOLEPSY
     Dosage: 4.5 G, BID
     Route: 048
     Dates: start: 201305
  7. ANTIHISTAMINE [Concomitant]
     Active Substance: UNSPECIFIED INGREDIENT
  8. PRAVASTATIN SODIUM. [Concomitant]
     Active Substance: PRAVASTATIN SODIUM
  9. XYREM [Suspect]
     Active Substance: SODIUM OXYBATE
     Indication: CATAPLEXY
  10. PROAIR HFA [Concomitant]
     Active Substance: ALBUTEROL SULFATE
  11. QUETIAPINE FUMARATE. [Concomitant]
     Active Substance: QUETIAPINE FUMARATE
  12. LYRICA [Concomitant]
     Active Substance: PREGABALIN
  13. VALIUM [Concomitant]
     Active Substance: DIAZEPAM
  14. LISINOPRIL. [Concomitant]
     Active Substance: LISINOPRIL
  15. MONTELUKAST SODIUM. [Concomitant]
     Active Substance: MONTELUKAST SODIUM
  16. SEROQUEL [Concomitant]
     Active Substance: QUETIAPINE FUMARATE
  17. LISINOPRIL AND HYDROCHLOROTHIAZIDE [Concomitant]
     Active Substance: HYDROCHLOROTHIAZIDE\LISINOPRIL
  18. NICODERM CQ [Concomitant]
     Active Substance: NICOTINE
  19. MELOXICAM. [Concomitant]
     Active Substance: MELOXICAM
  20. OXYCODONE HCL ER [Concomitant]
     Active Substance: OXYCODONE HYDROCHLORIDE
  21. METFORMIN HYDROCHLORIDE. [Concomitant]
     Active Substance: METFORMIN HYDROCHLORIDE

REACTIONS (4)
  - Feeling abnormal [Unknown]
  - Withdrawal syndrome [Unknown]
  - Drug interaction [Unknown]
  - Insomnia [Unknown]
